FAERS Safety Report 17152417 (Version 2)
Quarter: 2019Q4

REPORT INFORMATION
  Report Type: Report from Study
  Country: US (occurrence: US)
  Receive Date: 20191213
  Receipt Date: 20191219
  Transmission Date: 20200122
  Serious: Yes (Hospitalization)
  Sender: FDA-Public Use
  Company Number: US-ACTELION-A-NJ2019-197812

PATIENT
  Sex: Male
  Weight: 71.66 kg

DRUGS (4)
  1. OPSUMIT [Suspect]
     Active Substance: MACITENTAN
     Indication: PULMONARY ARTERIAL HYPERTENSION
     Dosage: 10 MG, QD
     Route: 048
  2. SILDENAFIL. [Concomitant]
     Active Substance: SILDENAFIL
  3. OXYMETAZOLINE [Concomitant]
     Active Substance: OXYMETAZOLINE
  4. OXYGEN. [Concomitant]
     Active Substance: OXYGEN

REACTIONS (6)
  - Hospitalisation [Unknown]
  - Fluid retention [Unknown]
  - Dyspnoea [Not Recovered/Not Resolved]
  - Nasal congestion [Unknown]
  - Headache [Unknown]
  - Fatigue [Recovering/Resolving]
